FAERS Safety Report 4777874-8 (Version None)
Quarter: 2005Q3

REPORT INFORMATION
  Report Type: 
  Country: None (occurrence: None)
  Receive Date: 20050926
  Receipt Date: 20050922
  Transmission Date: 20060218
  Serious: Yes (Life-Threatening)
  Sender: FDA-Public Use
  Company Number: JP-BOEHRINGER INGELHEIM PHARMACEUTICALS, INC.-2005-BP-16785NB

PATIENT
  Age: 63 Year
  Sex: Male

DRUGS (4)
  1. SPIRIVA [Suspect]
     Indication: BRONCHITIS CHRONIC
     Route: 055
     Dates: start: 20050830, end: 20050920
  2. THEO-DUR [Concomitant]
     Route: 048
  3. AMINOPHYLLINE [Concomitant]
     Route: 048
  4. HOKUNALIN TAPE (TULOBUTEROL) [Concomitant]
     Route: 062

REACTIONS (1)
  - CARDIAC FAILURE CONGESTIVE [None]
